FAERS Safety Report 4933659-0 (Version None)
Quarter: 2006Q1

REPORT INFORMATION
  Report Type: 
  Country: None (occurrence: None)
  Receive Date: 20060306
  Receipt Date: 20050618
  Transmission Date: 20060701
  Serious: Yes (Hospitalization)
  Sender: FDA-Public Use
  Company Number: PHBS2005BR09083

PATIENT
  Age: 23 Year
  Sex: Female

DRUGS (4)
  1. ELIDEL [Suspect]
     Indication: PITYRIASIS ALBA
     Dosage: UNK, UNK
     Route: 061
  2. ZELMAC [Suspect]
     Indication: IRRITABLE BOWEL SYNDROME
     Dosage: 6 MG/D
     Route: 048
  3. PLASIL [Concomitant]
     Indication: NAUSEA
  4. ELOCON [Concomitant]
     Indication: PITYRIASIS ALBA

REACTIONS (4)
  - BREECH PRESENTATION [None]
  - CAESAREAN SECTION [None]
  - DRUG EXPOSURE DURING PREGNANCY [None]
  - NORMAL NEWBORN [None]
